FAERS Safety Report 5483177-9 (Version None)
Quarter: 2007Q4

REPORT INFORMATION
  Report Type: 
  Country: None (occurrence: None)
  Receive Date: 20071005
  Receipt Date: 20070925
  Transmission Date: 20080405
  Serious: Yes (Other)
  Sender: FDA-Public Use
  Company Number: 2007AL002107

PATIENT
  Age: 32 Year
  Sex: Female

DRUGS (1)
  1. CITALOPRAM HYDROBROMIDE [Suspect]
     Indication: DEPRESSION
     Dosage: 20 MG;BID;PO
     Route: 048
     Dates: start: 20050501, end: 20070128

REACTIONS (2)
  - VISUAL DISTURBANCE [None]
  - VISUAL FIELD DEFECT [None]
